FAERS Safety Report 5286587-8 (Version None)
Quarter: 2007Q2

REPORT INFORMATION
  Report Type: 
  Country: None (occurrence: None)
  Receive Date: 20070404
  Receipt Date: 20070329
  Transmission Date: 20071010
  Serious: Yes (Hospitalization)
  Sender: FDA-Public Use
  Company Number: US-GLAXOSMITHKLINE-A0584467A

PATIENT
  Age: 55 Year
  Sex: Female
  Weight: 66.3 kg

DRUGS (24)
  1. AVANDIA [Suspect]
     Dosage: 8MG PER DAY
     Route: 048
     Dates: start: 20000301, end: 20051205
  2. GUAIFENESIN [Concomitant]
     Route: 065
  3. NADOLOL [Concomitant]
  4. CARDURA [Concomitant]
  5. GLUCOPHAGE [Concomitant]
     Dosage: 500MG TWICE PER DAY
     Dates: start: 20030103
  6. PRILOSEC [Concomitant]
     Dosage: 20MG PER DAY
     Dates: start: 20001201
  7. LIPITOR [Concomitant]
     Dosage: 10MG PER DAY
     Dates: start: 20001201
  8. ALLEGRA [Concomitant]
     Dates: start: 20001201
  9. SYNTHROID [Concomitant]
     Dosage: .1MG PER DAY
  10. PREDNISONE [Concomitant]
  11. NASONEX [Concomitant]
  12. ADVAIR DISKUS 100/50 [Concomitant]
     Route: 055
     Dates: start: 20041010
  13. ALBUTEROL [Concomitant]
  14. FOSAMAX [Concomitant]
     Dates: start: 20040816
  15. RESTASIS [Concomitant]
  16. CALCIUM SUPPLEMENTS [Concomitant]
  17. CORGARD [Concomitant]
     Dosage: 20MG PER DAY
  18. TENEX [Concomitant]
     Dosage: 1MG PER DAY
  19. PREMPRO [Concomitant]
     Dosage: .625MG PER DAY
     Dates: end: 20031105
  20. BECONASE [Concomitant]
     Dates: start: 20001201
  21. PREMARIN [Concomitant]
     Dosage: .625MG PER DAY
     Dates: start: 20031105
  22. PROVERA [Concomitant]
     Dates: start: 20031105, end: 20040902
  23. PAXIL CR [Concomitant]
     Dates: start: 20040223
  24. ALBUTEROL [Concomitant]
     Dosage: 2PUFF AS REQUIRED
     Route: 055
     Dates: start: 20041019

REACTIONS (60)
  - ANTINUCLEAR ANTIBODY INCREASED [None]
  - ANXIETY [None]
  - AORTIC VALVE SCLEROSIS [None]
  - ARTHRALGIA [None]
  - ARTHRITIS [None]
  - ASTHENIA [None]
  - ASTHMA [None]
  - BLISTER [None]
  - BRAIN NATRIURETIC PEPTIDE DECREASED [None]
  - BREATH SOUNDS ABNORMAL [None]
  - BRONCHITIS [None]
  - CARDIAC FAILURE CONGESTIVE [None]
  - CARDIOMEGALY [None]
  - CHEST DISCOMFORT [None]
  - CONJUNCTIVITIS [None]
  - CREST SYNDROME [None]
  - DILATATION ATRIAL [None]
  - DIZZINESS [None]
  - DYSPNOEA [None]
  - DYSPNOEA PAROXYSMAL NOCTURNAL [None]
  - EAR PAIN [None]
  - EXERCISE TOLERANCE DECREASED [None]
  - EYELID OEDEMA [None]
  - FATIGUE [None]
  - FLUID OVERLOAD [None]
  - GINGIVAL BLEEDING [None]
  - GINGIVAL SWELLING [None]
  - INCREASED TENDENCY TO BRUISE [None]
  - INFECTION IN AN IMMUNOCOMPROMISED HOST [None]
  - INSOMNIA [None]
  - INTERVERTEBRAL DISC DEGENERATION [None]
  - INTRAOCULAR PRESSURE INCREASED [None]
  - MITRAL VALVE DISEASE [None]
  - MITRAL VALVE INCOMPETENCE [None]
  - MUSCLE SPASMS [None]
  - MUSCULOSKELETAL STIFFNESS [None]
  - NASAL CYST [None]
  - NIGHT SWEATS [None]
  - NOCTURIA [None]
  - OCULAR HYPERAEMIA [None]
  - OEDEMA PERIPHERAL [None]
  - OSTEOARTHRITIS [None]
  - PAIN [None]
  - PANIC ATTACK [None]
  - PITTING OEDEMA [None]
  - PNEUMONIA [None]
  - PRODUCTIVE COUGH [None]
  - PULMONARY HYPERTENSION [None]
  - RESPIRATORY TRACT CONGESTION [None]
  - RHINORRHOEA [None]
  - SCIATICA [None]
  - SCLERODERMA [None]
  - SINUSITIS [None]
  - SJOGREN'S SYNDROME [None]
  - TELANGIECTASIA [None]
  - TOOTHACHE [None]
  - TRICUSPID VALVE INCOMPETENCE [None]
  - VENTRICULAR HYPERTROPHY [None]
  - WEIGHT INCREASED [None]
  - WHEEZING [None]
